FAERS Safety Report 5309625-2 (Version None)
Quarter: 2007Q2

REPORT INFORMATION
  Report Type: 
  Country: None (occurrence: None)
  Receive Date: 20070427
  Receipt Date: 20060510
  Transmission Date: 20071010
  Serious: No
  Sender: FDA-Public Use
  Company Number: US-GLAXOSMITHKLINE-A0605073A

PATIENT
  Age: 11 Year
  Sex: Female

DRUGS (1)
  1. DEXAMPHETAMINE SULPHATE [Suspect]
     Indication: ATTENTION DEFICIT/HYPERACTIVITY DISORDER
     Dosage: 30MG PER DAY
     Route: 048
     Dates: start: 20040101

REACTIONS (4)
  - ENURESIS [None]
  - HEADACHE [None]
  - INITIAL INSOMNIA [None]
  - PSYCHOMOTOR HYPERACTIVITY [None]
